FAERS Safety Report 5475941-7 (Version None)
Quarter: 2007Q4

REPORT INFORMATION
  Report Type: 
  Country: None (occurrence: None)
  Receive Date: 20071003
  Receipt Date: 20070926
  Transmission Date: 20080405
  Serious: No
  Sender: FDA-Public Use
  Company Number: JP-AVENTIS-200613790JP

PATIENT
  Weight: 3.41 kg

DRUGS (2)
  1. LANTUS [Suspect]
     Route: 058
  2. QUICK ACTING INSULIN [Concomitant]

REACTIONS (2)
  - DRUG EXPOSURE DURING PREGNANCY [None]
  - HYPOGLYCAEMIA NEONATAL [None]
